FAERS Safety Report 18086143 (Version 1)
Quarter: 2020Q3

REPORT INFORMATION
  Report Type: Spontaneous
  Country: US (occurrence: US)
  Receive Date: 20200727
  Receipt Date: 20200727
  Transmission Date: 20201103
  Serious: No
  Sender: FDA-Public Use
  Company Number: None

PATIENT
  Age: 69 Year
  Weight: 86.6 kg

DRUGS (1)
  1. ORENCIA [Suspect]
     Active Substance: ABATACEPT
     Indication: RHEUMATOID ARTHRITIS
     Dosage: ?          OTHER FREQUENCY:EVERY 28 DAYS;?
     Route: 058
     Dates: start: 20191118

REACTIONS (14)
  - Pyrexia [None]
  - Taste disorder [None]
  - Chest pain [None]
  - Therapy interrupted [None]
  - Headache [None]
  - Dyspnoea [None]
  - Nausea [None]
  - Anosmia [None]
  - Diarrhoea [None]
  - COVID-19 [None]
  - Myalgia [None]
  - Arthralgia [None]
  - Abdominal pain [None]
  - Vomiting [None]
